FAERS Safety Report 9061988 (Version 1)
Quarter: 2013Q1

REPORT INFORMATION
  Report Type: Spontaneous
  Country: AU (occurrence: None)
  Receive Date: 20130122
  Receipt Date: 20130122
  Transmission Date: 20140127
  Serious: Yes (Other)
  Sender: FDA-Public Use
  Company Number: 2008AP001289

PATIENT
  Age: 35 Year
  Sex: 0

DRUGS (3)
  1. TERBINAFINE HYDROCHLORIDE [Suspect]
     Indication: FUNGAL INFECTION
     Route: 048
  2. PAROXETINE (PAROXETINE) [Concomitant]
  3. TEGASEROD (TEGASEROD) [Concomitant]

REACTIONS (5)
  - Granulocytopenia [None]
  - Mouth ulceration [None]
  - Cellulitis [None]
  - White blood cell count decreased [None]
  - Neutropenia [None]
